FAERS Safety Report 25479846 (Version 4)
Quarter: 2025Q4

REPORT INFORMATION
  Report Type: Spontaneous
  Country: JP (occurrence: JP)
  Receive Date: 20250625
  Receipt Date: 20251218
  Transmission Date: 20260118
  Serious: Yes (Death, Hospitalization, Other)
  Sender: MERCK SHARP & DOHME LLC
  Company Number: JP-009507513-2271633

PATIENT
  Age: 8 Decade
  Sex: Male

DRUGS (2)
  1. KEYTRUDA [Suspect]
     Active Substance: PEMBROLIZUMAB
     Indication: Transitional cell carcinoma
     Dosage: 200MG, Q3W
     Route: 041
     Dates: start: 20250213, end: 20250306
  2. PADCEV [Suspect]
     Active Substance: ENFORTUMAB VEDOTIN-EJFV
     Route: 041
     Dates: start: 20250213, end: 20250306

REACTIONS (6)
  - Malignant neoplasm progression [Fatal]
  - Hypercalcaemia [Unknown]
  - Interstitial lung disease [Recovered/Resolved]
  - Depressed level of consciousness [Unknown]
  - Cerebral infarction [Unknown]
  - Haematuria [Unknown]

NARRATIVE: CASE EVENT DATE: 20250101
